FAERS Safety Report 9623035 (Version 2)
Quarter: 2014Q1

REPORT INFORMATION
  Report Type: Spontaneous
  Country: FR (occurrence: None)
  Receive Date: 20131010
  Receipt Date: 20140110
  Transmission Date: 20141002
  Serious: Yes (Other)
  Sender: FDA-Public Use
  Company Number: 1935274

PATIENT
  Age: 34 Year
  Sex: Male

DRUGS (1)
  1. PAMIDRONIC ACID [Suspect]
     Indication: OSTEONECROSIS
     Dosage: 60 MG MILLIGRAM(S), (1 DAY) INTRAVENOUS (NOT OTHERWISE SPECIFIED)
     Route: 042
     Dates: start: 20130604, end: 20130606

REACTIONS (4)
  - Thrombophlebitis superficial [None]
  - Lymphangitis [None]
  - Injection site pain [None]
  - Thrombophlebitis superficial [None]
